FAERS Safety Report 4425763-0 (Version None)
Quarter: 2004Q3

REPORT INFORMATION
  Report Type: 
  Country: None (occurrence: None)
  Receive Date: 20040810
  Receipt Date: 20040726
  Transmission Date: 20050211
  Serious: Yes (Disabling)
  Sender: FDA-Public Use
  Company Number: 200212999

PATIENT
  Age: 51 Year
  Sex: Female
  Weight: 48.9885 kg

DRUGS (2)
  1. BOTOX COSMETIC [Suspect]
     Indication: SKIN WRINKLING
     Dosage: 155 UNITS PRN IM
     Route: 030
     Dates: start: 20020618
  2. HYALAFORM [Concomitant]

REACTIONS (35)
  - ANXIETY [None]
  - BURNING SENSATION [None]
  - CHEST PAIN [None]
  - DECREASED APPETITE [None]
  - DYSAESTHESIA [None]
  - DYSPHAGIA [None]
  - EXOSTOSIS [None]
  - FEELING ABNORMAL [None]
  - GLOSSODYNIA [None]
  - HOARSENESS [None]
  - HYPERTROPHY [None]
  - HYPOAESTHESIA [None]
  - INFLAMMATION [None]
  - INTERVERTEBRAL DISC PROTRUSION [None]
  - JAW DISORDER [None]
  - JOINT RANGE OF MOTION DECREASED [None]
  - LIGAMENT DISORDER [None]
  - MUSCLE STRAIN [None]
  - MUSCLE TIGHTNESS [None]
  - MUSCULOSKELETAL STIFFNESS [None]
  - NECK INJURY [None]
  - NECK PAIN [None]
  - NERVOUS SYSTEM DISORDER [None]
  - NEUROPATHY PERIPHERAL [None]
  - PAIN [None]
  - PARAESTHESIA [None]
  - POST PROCEDURAL COMPLICATION [None]
  - RADICULITIS [None]
  - SCOLIOSIS [None]
  - SENSATION OF PRESSURE [None]
  - THROAT IRRITATION [None]
  - TONGUE COATED [None]
  - TONGUE DRY [None]
  - VIRAL INFECTION [None]
  - WEIGHT DECREASED [None]
